FAERS Safety Report 8073853-6 (Version None)
Quarter: 2012Q1

REPORT INFORMATION
  Report Type: 
  Country: None (occurrence: None)
  Receive Date: 20120126
  Receipt Date: 20120118
  Transmission Date: 20120608
  Serious: Yes (Hospitalization, Other)
  Sender: FDA-Public Use
  Company Number: US-BAYER-2011-046214

PATIENT
  Age: 30 Year
  Sex: Female
  Weight: 68.934 kg

DRUGS (16)
  1. ACETAMINOPHEN [Concomitant]
     Indication: CHEST PAIN
     Dosage: UNK UNK, PRN
  2. AMOXICILLIN [Concomitant]
     Indication: OROPHARYNGEAL PAIN
     Dosage: 1 CAPSULE TWICE DAILY
     Dates: start: 20080731, end: 20080803
  3. PRILOSEC [Concomitant]
  4. CEFUROXIME [Concomitant]
  5. CEFTIN [Concomitant]
     Indication: SINUSITIS
     Dosage: 250 MG, TWICE DAILY
     Dates: start: 20080501
  6. NSAID'S [Concomitant]
     Indication: PAIN
     Dosage: UNK
     Dates: start: 20080731
  7. STEROID ANTIBACTERIALS [Concomitant]
  8. IBUPROFEN (ADVIL) [Concomitant]
     Indication: CHEST PAIN
     Dosage: UNK UNK, PRN
  9. LORTAB [Concomitant]
  10. YAZ [Suspect]
     Indication: CONTRACEPTION
     Dosage: UNK
     Dates: start: 20071101, end: 20080803
  11. ROLAIDS [Concomitant]
  12. VALTREX [Concomitant]
  13. ZYRTEC [Concomitant]
     Indication: SINUSITIS
     Dosage: 10 MG, DAILY
  14. PRILOSEC [Concomitant]
     Indication: DYSPEPSIA
     Dosage: 1 CAPSULE DAILY
  15. METHYLPREDNISOLONE [Concomitant]
  16. NAPROXEN (ALEVE) [Concomitant]
     Indication: CHEST PAIN
     Dosage: UNK UNK, PRN

REACTIONS (9)
  - CHEST PAIN [None]
  - PAIN [None]
  - PULMONARY INFARCTION [None]
  - INJURY [None]
  - DYSPNOEA [None]
  - EMOTIONAL DISTRESS [None]
  - CHOLECYSTITIS CHRONIC [None]
  - PULMONARY EMBOLISM [None]
  - ANHEDONIA [None]
